FAERS Safety Report 21270309 (Version 1)
Quarter: 2022Q3

REPORT INFORMATION
  Report Type: Spontaneous
  Country: CA (occurrence: CA)
  Receive Date: 20220830
  Receipt Date: 20220830
  Transmission Date: 20221026
  Serious: Yes (Hospitalization, Other)
  Sender: FDA-Public Use
  Company Number: CA-BAYER-2022A118610

PATIENT
  Age: 61 Year
  Sex: Female
  Weight: 77 kg

DRUGS (14)
  1. ALEVE [Suspect]
     Active Substance: NAPROXEN SODIUM
     Indication: Fibromyalgia
     Dosage: 220 MG, QD
     Route: 048
  2. DULOXETINE [Concomitant]
     Active Substance: DULOXETINE
     Route: 065
  3. ESCITALOPRAM [Concomitant]
     Active Substance: ESCITALOPRAM OXALATE
  4. FLUTICASONE [Concomitant]
     Active Substance: FLUTICASONE
  5. CRESTOR [Concomitant]
     Active Substance: ROSUVASTATIN CALCIUM
  6. PLAVIX [Concomitant]
     Active Substance: CLOPIDOGREL BISULFATE
  7. IPRATROPIUM [Concomitant]
     Active Substance: IPRATROPIUM
  8. ASPIRIN [Concomitant]
     Active Substance: ASPIRIN
  9. CEFIXIME [Concomitant]
     Active Substance: CEFIXIME
  10. CANDESARTAN [Concomitant]
     Active Substance: CANDESARTAN
  11. LYRICA [Concomitant]
     Active Substance: PREGABALIN
  12. APO-AMILORIDE [Concomitant]
  13. LASIX [Concomitant]
     Active Substance: FUROSEMIDE
  14. CLONAZEPAM [Concomitant]
     Active Substance: CLONAZEPAM

REACTIONS (3)
  - Gastric ulcer haemorrhage [Recovered/Resolved]
  - Duodenal ulcer haemorrhage [Recovered/Resolved]
  - Gastrointestinal vascular malformation haemorrhagic [Recovered/Resolved]
